FAERS Safety Report 13567980 (Version 1)
Quarter: 2017Q2

REPORT INFORMATION
  Report Type: Spontaneous
  Country: JP (occurrence: JP)
  Receive Date: 20170522
  Receipt Date: 20170522
  Transmission Date: 20170830
  Serious: Yes (Other)
  Sender: FDA-Public Use
  Company Number: JP-GLAXOSMITHKLINE-JP2016JPN188123

PATIENT
  Sex: Female
  Weight: 55 kg

DRUGS (1)
  1. LAMICTAL [Suspect]
     Active Substance: LAMOTRIGINE
     Indication: EPILEPSY
     Dosage: 200 MG, 1D
     Route: 048
     Dates: start: 20090806

REACTIONS (9)
  - Somnolence [Unknown]
  - Epileptic aura [Unknown]
  - Disorientation [Unknown]
  - Live birth [Unknown]
  - Drug level decreased [Unknown]
  - Loss of consciousness [Unknown]
  - Headache [Unknown]
  - Epilepsy [Unknown]
  - Exposure during pregnancy [Unknown]
